FAERS Safety Report 5840248-2 (Version None)
Quarter: 2008Q3

REPORT INFORMATION
  Report Type: 
  Country: None (occurrence: None)
  Receive Date: 20080807
  Receipt Date: 20080807
  Transmission Date: 20090109
  Serious: Yes (Death)
  Sender: FDA-Public Use
  Company Number: None

PATIENT
  Age: 31 Year
  Sex: Female
  Weight: 68.0396 kg

DRUGS (4)
  1. CYMBALTA [Suspect]
     Indication: BORDERLINE PERSONALITY DISORDER
     Dosage: 90MG DAILY PO
     Route: 048
  2. CYMBALTA [Suspect]
     Indication: DEPRESSION
     Dosage: 90MG DAILY PO
     Route: 048
  3. SKELAXIN [Concomitant]
  4. ACETAMINOPHEN AND HYDROCODONE BITARTRATE [Concomitant]

REACTIONS (2)
  - COMPLETED SUICIDE [None]
  - WITHDRAWAL SYNDROME [None]
